FAERS Safety Report 11102356 (Version 2)
Quarter: 2017Q4

REPORT INFORMATION
  Report Type: Report from Study
  Country: US (occurrence: US)
  Receive Date: 20150511
  Receipt Date: 20171102
  Transmission Date: 20180320
  Serious: Yes (Life-Threatening, Hospitalization, Other)
  Sender: FDA-Public Use
  Company Number: US-ROCHE-1573509

PATIENT
  Age: 10 Year
  Sex: Female

DRUGS (1)
  1. BEVACIZUMAB. [Suspect]
     Active Substance: BEVACIZUMAB
     Indication: BRAIN STEM GLIOMA
     Route: 065

REACTIONS (2)
  - Bone infarction [Unknown]
  - Cellulitis [Unknown]
